FAERS Safety Report 19764243 (Version 2)
Quarter: 2021Q3

REPORT INFORMATION
  Report Type: Report from Study
  Country: US (occurrence: US)
  Receive Date: 20210830
  Receipt Date: 20210924
  Transmission Date: 20211014
  Serious: Yes (Hospitalization, Other)
  Sender: FDA-Public Use
  Company Number: US-TAKEDA-US201902978

PATIENT
  Age: 51 Year
  Sex: Female

DRUGS (5)
  1. LANADELUMAB [Suspect]
     Active Substance: LANADELUMAB
     Indication: PRODUCT USED FOR UNKNOWN INDICATION
     Dosage: 300 MILLIGRAM, 2/WEEK
     Route: 058
     Dates: start: 20190113
  2. LANADELUMAB [Suspect]
     Active Substance: LANADELUMAB
     Dosage: 300 MILLIGRAM, OTHER
     Route: 058
     Dates: start: 201911
  3. ICATIBANT [Concomitant]
     Active Substance: ICATIBANT ACETATE
     Dosage: UNK
     Route: 065
  4. LANADELUMAB [Suspect]
     Active Substance: LANADELUMAB
     Dosage: 300 MILLIGRAM
     Route: 058
     Dates: start: 201811
  5. ORLADEYO [Concomitant]
     Active Substance: BEROTRALSTAT HYDROCHLORIDE
     Dosage: UNK
     Route: 065

REACTIONS (9)
  - Loss of consciousness [Unknown]
  - Hypoaesthesia [Unknown]
  - Seizure [Unknown]
  - Stress [Unknown]
  - Ear infection [Not Recovered/Not Resolved]
  - Cystitis [Not Recovered/Not Resolved]
  - Cerebrovascular accident [Unknown]
  - Injection site pain [Unknown]
  - Hereditary angioedema [Not Recovered/Not Resolved]

NARRATIVE: CASE EVENT DATE: 20190124
